FAERS Safety Report 23966937 (Version 2)
Quarter: 2024Q2

REPORT INFORMATION
  Report Type: Spontaneous
  Country: US (occurrence: US)
  Receive Date: 20240612
  Receipt Date: 20240617
  Transmission Date: 20240715
  Serious: Yes (Hospitalization)
  Sender: FDA-Public Use
  Company Number: US-FMCRTG-FMC-2406-000662

PATIENT
  Sex: Male

DRUGS (4)
  1. DELFLEX WITH DEXTROSE 1.5% LOW MAGNESIUM LOW CALCIUM [Suspect]
     Active Substance: CALCIUM CHLORIDE\DEXTROSE\MAGNESIUM CHLORIDE\SODIUM CHLORIDE\SODIUM LACTATE
     Indication: End stage renal disease
     Dosage: 7 DAYS-A-WEEK, EXCHANGES = 5, FILL VOLUME = 2400 ML, DWELL TIME = 2.0 HOURS, LAST FILL = 2000 ML (IC
     Route: 033
  2. DELFLEX WITH DEXTROSE 2.5% LOW MAGNESIUM LOW CALCIUM [Suspect]
     Active Substance: CALCIUM CHLORIDE\DEXTROSE\MAGNESIUM CHLORIDE\SODIUM CHLORIDE\SODIUM LACTATE
     Indication: End stage renal disease
     Dosage: 7 DAYS-A-WEEK, EXCHANGES = 5, FILL VOLUME = 2400 ML, DWELL TIME = 2.0 HOURS, LAST FILL = 2000 ML (IC
     Route: 033
  3. DELFLEX WITH DEXTROSE 4.25% LOW MAGNESIUM LOW CALCIUM [Suspect]
     Active Substance: CALCIUM CHLORIDE\DEXTROSE\MAGNESIUM CHLORIDE\SODIUM CHLORIDE\SODIUM LACTATE
     Indication: End stage renal disease
     Dosage: 7 DAYS-A-WEEK, EXCHANGES = 5, FILL VOLUME = 2400 ML, DWELL TIME = 2.0 HOURS, LAST FILL = 2000 ML (IC
     Route: 033
  4. ICODEXTRIN [Suspect]
     Active Substance: ICODEXTRIN
     Indication: End stage renal disease
     Dosage: 7 DAYS-A-WEEK, EXCHANGES = 5, FILL VOLUME = 2400 ML, DWELL TIME = 2.0 HOURS, LAST FILL = 2000 ML (IC

REACTIONS (3)
  - Pneumonia [Recovering/Resolving]
  - Hypervolaemia [Recovering/Resolving]
  - Treatment noncompliance [Unknown]
